FAERS Safety Report 4391341-5 (Version None)
Quarter: 2004Q2

REPORT INFORMATION
  Report Type: 
  Country: None (occurrence: None)
  Receive Date: 20040621
  Receipt Date: 20031031
  Transmission Date: 20050107
  Serious: Yes (Other)
  Sender: FDA-Public Use
  Company Number: USA-2003-0010606

PATIENT
  Sex: Male

DRUGS (1)
  1. OXYCONTIN [Suspect]
     Indication: PAIN

REACTIONS (7)
  - ANXIETY [None]
  - DEPRESSION [None]
  - DRUG DEPENDENCE [None]
  - DRUG INEFFECTIVE [None]
  - DRUG TOLERANCE [None]
  - DRUG WITHDRAWAL SYNDROME [None]
  - PAIN [None]
